FAERS Safety Report 9602379 (Version 1)
Quarter: 2013Q4

REPORT INFORMATION
  Report Type: Spontaneous
  Country: US (occurrence: US)
  Receive Date: 20131007
  Receipt Date: 20131007
  Transmission Date: 20140711
  Serious: No
  Sender: FDA-Public Use
  Company Number: US-GLAXOSMITHKLINE-A1038317A

PATIENT
  Age: 20 Year
  Sex: Female

DRUGS (8)
  1. BENLYSTA [Suspect]
     Indication: LUPUS NEPHRITIS
     Route: 042
     Dates: start: 20130819
  2. SOLUMEDROL [Concomitant]
  3. FORTAZ [Concomitant]
  4. LISINOPRIL [Concomitant]
  5. PLAQUENIL [Concomitant]
  6. METHOCARBAMOL [Concomitant]
  7. AMITRIPTYLINE [Concomitant]
  8. BIRTH CONTROL [Concomitant]

REACTIONS (5)
  - Arthralgia [Unknown]
  - Headache [Unknown]
  - Mood altered [Unknown]
  - Insomnia [Unknown]
  - Night sweats [Unknown]
